FAERS Safety Report 5750356-2 (Version None)
Quarter: 2008Q2

REPORT INFORMATION
  Report Type: 
  Country: None (occurrence: None)
  Receive Date: 20080528
  Receipt Date: 20080522
  Transmission Date: 20081010
  Serious: Yes (Other)
  Sender: FDA-Public Use
  Company Number: ES-RANBAXY-2008RR-15342

PATIENT

DRUGS (11)
  1. MIDAZOLAM HCL [Suspect]
     Indication: SEDATION
  2. CEFTAZIDIMA RANBAXY 1 G POLVERE PER SOLUZIONE PER INFUSIONE [Suspect]
  3. RAN-FENTANYL TRANSDERMAL SYSTEM [Suspect]
     Indication: SEDATION
  4. ALBUTEROL [Suspect]
     Route: 055
  5. PREDNISONE TAB [Suspect]
     Dosage: 2 MG/KG, QD
  6. IPRATROPIUM BROMIDE [Suspect]
     Route: 055
  7. GENTAMICIN [Suspect]
  8. VANCOMYCIN [Suspect]
  9. MEROPENEM [Suspect]
  10. DOPAMINE HCL [Suspect]
  11. VECURONIUM BROMIDE [Suspect]
     Indication: HYPOTONIA

REACTIONS (2)
  - NAIL DISORDER [None]
  - PYOGENIC GRANULOMA [None]
